FAERS Safety Report 10303235 (Version 3)
Quarter: 2014Q4

REPORT INFORMATION
  Report Type: Spontaneous
  Country: US (occurrence: US)
  Receive Date: 20140714
  Receipt Date: 20141016
  Transmission Date: 20150528
  Serious: Yes (Other)
  Sender: FDA-Public Use
  Company Number: US-TEVA-493420USA

PATIENT
  Sex: Female

DRUGS (12)
  1. TOCOPHERYL [Concomitant]
  2. FOLIC ACID. [Concomitant]
     Active Substance: FOLIC ACID
  3. BUSPAR [Concomitant]
     Active Substance: BUSPIRONE HYDROCHLORIDE
  4. COQ10 [Concomitant]
     Active Substance: UBIDECARENONE
  5. MAGNESIUM [Concomitant]
     Active Substance: MAGNESIUM
  6. COPAXONE [Suspect]
     Active Substance: GLATIRAMER ACETATE
     Indication: MULTIPLE SCLEROSIS
     Dates: start: 20140509, end: 20140629
  7. AMBIEN [Concomitant]
     Active Substance: ZOLPIDEM TARTRATE
  8. REMERON [Concomitant]
     Active Substance: MIRTAZAPINE
  9. MELATONIN [Concomitant]
     Active Substance: MELATONIN
  10. BIOTIN [Concomitant]
     Active Substance: BIOTIN
  11. LUTEIN [Concomitant]
     Active Substance: LUTEIN
  12. VITAMIN B12 [Concomitant]
     Active Substance: CYANOCOBALAMIN

REACTIONS (2)
  - Dyspnoea [Unknown]
  - Chest discomfort [Recovered/Resolved]

NARRATIVE: CASE EVENT DATE: 20140629
